FAERS Safety Report 16809599 (Version 1)
Quarter: 2019Q3

REPORT INFORMATION
  Report Type: Spontaneous
  Country: US (occurrence: US)
  Receive Date: 20190724
  Receipt Date: 20190724
  Transmission Date: 20191005
  Serious: Yes (Other)
  Sender: FDA-Public Use
  Company Number: None

PATIENT
  Age: 66 Year
  Sex: Male
  Weight: 93.44 kg

DRUGS (8)
  1. LOTEMAX [Suspect]
     Active Substance: LOTEPREDNOL ETABONATE
     Dosage: ?          OTHER ROUTE:EYE DROPS?
  2. LISINOPRIL. [Concomitant]
     Active Substance: LISINOPRIL
  3. PREDNISOLONE 1% OPTH SUSP [Suspect]
     Active Substance: PREDNISOLONE ACETATE
     Indication: PROPHYLAXIS AGAINST TRANSPLANT REJECTION
     Dosage: ?          QUANTITY:2 DROPS EACH;OTHER ROUTE:EYE DROP?
  4. LOVASTATIN. [Concomitant]
     Active Substance: LOVASTATIN
  5. ADVAIR DISKUS [Concomitant]
     Active Substance: FLUTICASONE PROPIONATE\SALMETEROL XINAFOATE
  6. MUCINEX [Concomitant]
     Active Substance: GUAIFENESIN
  7. DILTIAZEM. [Concomitant]
     Active Substance: DILTIAZEM
  8. CPAP MACHINE AND MASK [Concomitant]

REACTIONS (13)
  - Pruritus [None]
  - Anxiety [None]
  - Swelling [None]
  - Rash [None]
  - Erythema [None]
  - Mouth swelling [None]
  - Foreign body sensation in eyes [None]
  - Lip swelling [None]
  - Eczema [None]
  - Urticaria [None]
  - Swelling face [None]
  - Rash papular [None]
  - Skin exfoliation [None]

NARRATIVE: CASE EVENT DATE: 20181221
